FAERS Safety Report 8390976-2 (Version None)
Quarter: 2012Q2

REPORT INFORMATION
  Report Type: 
  Country: None (occurrence: None)
  Receive Date: 20120529
  Receipt Date: 20120521
  Transmission Date: 20120825
  Serious: Yes (Hospitalization)
  Sender: FDA-Public Use
  Company Number: US-UCBSA-057833

PATIENT
  Age: 63 Year
  Sex: Female
  Weight: 109.7 kg

DRUGS (1)
  1. CIMZIA [Suspect]
     Indication: RHEUMATOID ARTHRITIS
     Dates: start: 20120118, end: 20120118

REACTIONS (2)
  - DYSPNOEA EXERTIONAL [None]
  - CARDIAC FAILURE CONGESTIVE [None]
